FAERS Safety Report 16203046 (Version 1)
Quarter: 2019Q2

REPORT INFORMATION
  Report Type: Report from Study
  Country: JP (occurrence: JP)
  Receive Date: 20190416
  Receipt Date: 20190416
  Transmission Date: 20190711
  Serious: Yes (Death)
  Sender: FDA-Public Use
  Company Number: JP-BAYER-2019-075958

PATIENT

DRUGS (2)
  1. ACETYLSALICYLIC ACID (CARDIO) [Suspect]
     Active Substance: ASPIRIN
     Indication: NEOPLASM PROPHYLAXIS
  2. ACETYLSALICYLIC ACID (CARDIO) [Suspect]
     Active Substance: ASPIRIN
     Indication: COLON NEOPLASM
     Dosage: 100 MG, QD
     Route: 048

REACTIONS (1)
  - Cerebral haemorrhage [Fatal]
